FAERS Safety Report 8030257-X (Version None)
Quarter: 2012Q1

REPORT INFORMATION
  Report Type: 
  Country: None (occurrence: None)
  Receive Date: 20120109
  Receipt Date: 20120103
  Transmission Date: 20120608
  Serious: No
  Sender: FDA-Public Use
  Company Number: PHHY2011AU90922

PATIENT
  Sex: Female

DRUGS (1)
  1. GILENYA [Suspect]
     Indication: MULTIPLE SCLEROSIS
     Dosage: 0.5 MG, DAILY
     Route: 048
     Dates: start: 20110907

REACTIONS (5)
  - PYREXIA [None]
  - RASH VESICULAR [None]
  - UPPER RESPIRATORY TRACT INFECTION [None]
  - HERPES ZOSTER [None]
  - SENSORY DISTURBANCE [None]
